FAERS Safety Report 16859973 (Version 1)
Quarter: 2019Q4

REPORT INFORMATION
  Report Type: Spontaneous
  Country: US (occurrence: US)
  Receive Date: 20190927
  Receipt Date: 20190927
  Transmission Date: 20200122
  Serious: Yes (Hospitalization)
  Sender: FDA-Public Use
  Company Number: None

PATIENT
  Sex: Female

DRUGS (6)
  1. TYLENOL [Concomitant]
     Active Substance: ACETAMINOPHEN
  2. XELJANZ [Suspect]
     Active Substance: TOFACITINIB CITRATE
     Indication: COLITIS ULCERATIVE
     Route: 048
     Dates: start: 20190305
  3. GABAPENTIN. [Concomitant]
     Active Substance: GABAPENTIN
  4. CLONAZEPAM. [Concomitant]
     Active Substance: CLONAZEPAM
  5. PREDNISONE. [Concomitant]
     Active Substance: PREDNISONE
  6. ESCITALOPRAM [Concomitant]
     Active Substance: ESCITALOPRAM OXALATE

REACTIONS (3)
  - Haemorrhage [None]
  - Abdominal pain upper [None]
  - Condition aggravated [None]
